FAERS Safety Report 11805925 (Version 2)
Quarter: 2015Q4

REPORT INFORMATION
  Report Type: Spontaneous
  Country: AT (occurrence: AT)
  Receive Date: 20151207
  Receipt Date: 20151231
  Transmission Date: 20160305
  Serious: Yes (Other)
  Sender: FDA-Public Use
  Company Number: AT-ROCHE-1672926

PATIENT
  Age: 72 Year
  Sex: Female
  Weight: 58 kg

DRUGS (5)
  1. MABTHERA [Suspect]
     Active Substance: RITUXIMAB
     Indication: B-CELL LYMPHOMA
  2. LIDAPRIM FORTE [Concomitant]
     Indication: PROPHYLAXIS
     Route: 065
     Dates: end: 201509
  3. MABTHERA [Suspect]
     Active Substance: RITUXIMAB
     Indication: B-CELL LYMPHOMA
     Route: 058
     Dates: start: 20150318, end: 20150902
  4. DILATREND [Concomitant]
     Active Substance: CARVEDILOL
     Dosage: 1/4 - 0 - 1/4
     Route: 065
  5. VALACICLOVIR [Concomitant]
     Active Substance: VALACYCLOVIR HYDROCHLORIDE
     Route: 065

REACTIONS (1)
  - Hemiparesis [Recovering/Resolving]

NARRATIVE: CASE EVENT DATE: 201508
